FAERS Safety Report 7403343-2 (Version None)
Quarter: 2011Q2

REPORT INFORMATION
  Report Type: 
  Country: None (occurrence: None)
  Receive Date: 20110408
  Receipt Date: 20110401
  Transmission Date: 20111010
  Serious: Yes (Hospitalization)
  Sender: FDA-Public Use
  Company Number: A0773192A

PATIENT
  Age: 78 Year
  Sex: Male
  Weight: 93.2 kg

DRUGS (8)
  1. COUMADIN [Concomitant]
  2. METFORMIN [Concomitant]
  3. NEXIUM [Concomitant]
  4. GLYBURIDE [Concomitant]
  5. GEMFIBROZIL [Concomitant]
  6. AVANDIA [Suspect]
     Indication: DIABETES MELLITUS
     Dosage: 4MG TWICE PER DAY
     Route: 048
     Dates: start: 20040401, end: 20070505
  7. AMARYL [Concomitant]
  8. DIGOXIN [Concomitant]

REACTIONS (2)
  - ARTERIOSCLEROSIS [None]
  - CEREBROVASCULAR ACCIDENT [None]
